FAERS Safety Report 6977338-7 (Version None)
Quarter: 2010Q3

REPORT INFORMATION
  Report Type: 
  Country: None (occurrence: None)
  Receive Date: 20100910
  Receipt Date: 20100907
  Transmission Date: 20110219
  Serious: Yes (Death)
  Sender: FDA-Public Use
  Company Number: PHHY2010PA59311

PATIENT
  Age: 98 Year
  Sex: Female

DRUGS (1)
  1. EXFORGE [Suspect]
     Dosage: 5/160 MG, UNK

REACTIONS (1)
  - DEATH [None]
